FAERS Safety Report 5386726-4 (Version None)
Quarter: 2007Q3

REPORT INFORMATION
  Report Type: 
  Country: None (occurrence: None)
  Receive Date: 20070713
  Receipt Date: 20070706
  Transmission Date: 20080115
  Serious: Yes (Other)
  Sender: FDA-Public Use
  Company Number: IT-ASTRAZENECA-2007SE03912

PATIENT
  Age: 52 Year
  Sex: Male

DRUGS (5)
  1. ROPIVACAINE [Suspect]
     Indication: EPIDURAL ANAESTHESIA
     Route: 008
  2. BETA-BLOCKER [Concomitant]
     Indication: HYPERTENSION
  3. CA++-ANTAGONIST [Concomitant]
     Indication: HYPERTENSION
  4. LIDOCAINE [Concomitant]
     Indication: ANAESTHESIA
     Route: 061
  5. BUPIVACAINE [Concomitant]
     Indication: ANAESTHESIA
     Route: 037

REACTIONS (6)
  - HALLUCINATION, VISUAL [None]
  - HYPERACUSIS [None]
  - LOSS OF CONSCIOUSNESS [None]
  - MUSCLE RIGIDITY [None]
  - PARAESTHESIA [None]
  - SPEECH DISORDER [None]
